FAERS Safety Report 7716524-5 (Version None)
Quarter: 2011Q3

REPORT INFORMATION
  Report Type: 
  Country: None (occurrence: None)
  Receive Date: 20110829
  Receipt Date: 20110824
  Transmission Date: 20111222
  Serious: Yes (Other)
  Sender: FDA-Public Use
  Company Number: US-VERTEX PHARMACEUTICALS INC.-AE-2011-001088

PATIENT
  Age: 55 Year
  Sex: Male

DRUGS (3)
  1. INCIVEK [Suspect]
     Indication: HEPATITIS C
  2. PEGINTERFERON [Concomitant]
     Indication: HEPATITIS C
  3. RIBAVIRIN [Concomitant]
     Indication: HEPATITIS C

REACTIONS (1)
  - RASH [None]
